FAERS Safety Report 21053428 (Version 1)
Quarter: 2022Q3

REPORT INFORMATION
  Report Type: Spontaneous
  Country: US (occurrence: US)
  Receive Date: 20220707
  Receipt Date: 20220707
  Transmission Date: 20221027
  Serious: Yes (Other)
  Sender: FDA-Public Use
  Company Number: US-SA-SAC20220706001166

PATIENT
  Age: 43 Year
  Sex: Female

DRUGS (1)
  1. DUPIXENT [Suspect]
     Active Substance: DUPILUMAB
     Indication: Asthma
     Dosage: 300 MG, QOW
     Route: 058
     Dates: start: 202205

REACTIONS (6)
  - Sjogren^s syndrome [Unknown]
  - Demyelination [Unknown]
  - Muscle spasms [Unknown]
  - Fibromyalgia [Unknown]
  - Inflammatory marker increased [Unknown]
  - Arthralgia [Unknown]
